FAERS Safety Report 21949885 (Version 1)
Quarter: 2023Q1

REPORT INFORMATION
  Report Type: Spontaneous
  Country: US (occurrence: None)
  Receive Date: 20230202
  Receipt Date: 20230202
  Transmission Date: 20230418
  Serious: Yes (Death)
  Sender: FDA-Public Use
  Company Number: None

PATIENT
  Age: 79 Year
  Sex: Male
  Weight: 110 kg

DRUGS (1)
  1. TIGECYCLINE [Suspect]
     Active Substance: TIGECYCLINE
     Dates: start: 20230131, end: 20230131

REACTIONS (3)
  - Aspiration [None]
  - Asphyxia [None]
  - Cardiac arrest [None]

NARRATIVE: CASE EVENT DATE: 20230131
